FAERS Safety Report 10070226 (Version 3)
Quarter: 2014Q2

REPORT INFORMATION
  Report Type: Spontaneous
  Country: US (occurrence: US)
  Receive Date: 20140410
  Receipt Date: 20140607
  Transmission Date: 20141212
  Serious: Yes (Hospitalization, Disabling)
  Sender: FDA-Public Use
  Company Number: PHEH2014US006706

PATIENT
  Age: 58 Year
  Sex: Female
  Weight: 99 kg

DRUGS (9)
  1. GILENYA [Suspect]
     Indication: RELAPSING-REMITTING MULTIPLE SCLEROSIS
     Dosage: 0.5 MG, QD
     Route: 048
     Dates: start: 201303
  2. GILENYA [Suspect]
     Dosage: 0.5 MG, UNK
     Route: 048
     Dates: start: 201304, end: 201403
  3. ANASTROZOLE [Concomitant]
     Indication: BREAST CANCER
     Dosage: 1 MG, UNK
     Route: 048
  4. RECLAST [Concomitant]
  5. MODAFINIL [Concomitant]
  6. FLUOXETINE [Concomitant]
  7. LEVOTHYROXINE [Concomitant]
  8. LIPITOR [Concomitant]
  9. GABAPENTIN [Concomitant]

REACTIONS (3)
  - Endometrial adenocarcinoma [Recovering/Resolving]
  - Vaginal haemorrhage [Recovering/Resolving]
  - Benign neoplasm of cervix uteri [Unknown]
